FAERS Safety Report 9519691 (Version 1)
Quarter: 2013Q3

REPORT INFORMATION
  Report Type: Spontaneous
  Country: US (occurrence: US)
  Receive Date: 20130912
  Receipt Date: 20130912
  Transmission Date: 20140515
  Serious: Yes (Other)
  Sender: FDA-Public Use
  Company Number: US-JNJFOC-20130903695

PATIENT
  Age: 53 Year
  Sex: Female
  Weight: 103.42 kg

DRUGS (5)
  1. INVOKANA [Suspect]
     Indication: TYPE 2 DIABETES MELLITUS
     Route: 048
     Dates: start: 20130828, end: 20130905
  2. SYNTHROID [Concomitant]
     Indication: THYROID DISORDER
     Dosage: ON AN EMPTY STOMACH
     Route: 048
     Dates: start: 2003
  3. VICTOZA [Concomitant]
     Dosage: ^18^ ONCE DAILY AT NIGHT
     Route: 058
     Dates: start: 201306
  4. POTASSIUM [Concomitant]
     Indication: HYPOKALAEMIA
     Route: 048
  5. MULTIVITAMINS [Concomitant]
     Indication: ROUTINE HEALTH MAINTENANCE
     Route: 048

REACTIONS (6)
  - Palpitations [Recovered/Resolved]
  - Weight increased [Not Recovered/Not Resolved]
  - Constipation [Recovering/Resolving]
  - Formication [Recovered/Resolved]
  - Poor quality sleep [Recovering/Resolving]
  - Hunger [Recovered/Resolved]
